FAERS Safety Report 6905737-8 (Version None)
Quarter: 2010Q3

REPORT INFORMATION
  Report Type: 
  Country: None (occurrence: None)
  Receive Date: 20100804
  Receipt Date: 20100721
  Transmission Date: 20110219
  Serious: Yes (Other)
  Sender: FDA-Public Use
  Company Number: GB-MYLANLABS-2010S1013197

PATIENT
  Age: 92 Year
  Sex: Male

DRUGS (8)
  1. MIRTAZAPINE [Suspect]
     Indication: DEPRESSION
     Route: 048
     Dates: start: 20100704, end: 20100707
  2. ZOPICLONE [Suspect]
     Indication: INSOMNIA
     Route: 048
     Dates: start: 20100701, end: 20100703
  3. FLUOXETINE [Concomitant]
     Indication: DEPRESSION
     Route: 048
     Dates: end: 20100710
  4. ISPAGHULA HUSK /00029101/ [Concomitant]
     Indication: CONSTIPATION
     Route: 048
  5. LANSOPRAZOLE [Concomitant]
     Indication: PRODUCT USED FOR UNKNOWN INDICATION
     Route: 048
  6. MACROGOL 3350 [Concomitant]
     Indication: CONSTIPATION
     Route: 048
     Dates: start: 20100706
  7. LEUPRORELIN [Concomitant]
     Indication: BENIGN PROSTATIC HYPERPLASIA
     Route: 058
  8. LOFEPRAMINE [Concomitant]
     Indication: DEPRESSION
     Route: 048
     Dates: start: 20100708

REACTIONS (1)
  - PRIAPISM [None]
